FAERS Safety Report 5375849-1 (Version None)
Quarter: 2007Q3

REPORT INFORMATION
  Report Type: 
  Country: None (occurrence: None)
  Receive Date: 20070702
  Receipt Date: 20070626
  Transmission Date: 20080115
  Serious: Yes (Other)
  Sender: FDA-Public Use
  Company Number: PHEH2007US09297

PATIENT
  Sex: Female

DRUGS (3)
  1. DIOVAN [Suspect]
     Dosage: 80 MG, QD
     Route: 048
  2. DIOVAN [Suspect]
     Dosage: 160 MG, QD
     Route: 048
  3. DIOVAN [Suspect]
     Dosage: 320 MG, QD
     Route: 048

REACTIONS (1)
  - HEART RATE INCREASED [None]
